FAERS Safety Report 5654434-8 (Version None)
Quarter: 2008Q1

REPORT INFORMATION
  Report Type: 
  Country: None (occurrence: None)
  Receive Date: 20080305
  Receipt Date: 20080128
  Transmission Date: 20080703
  Serious: Yes (Hospitalization)
  Sender: FDA-Public Use
  Company Number: 1-15730872

PATIENT
  Age: 76 Year
  Sex: Male
  Weight: 79.3795 kg

DRUGS (2)
  1. DISODIUM EDTA DIHYDRATE IN PLASTIC CONTAINER [Suspect]
     Indication: ARTERIOSCLEROSIS
     Dosage: INTRAVENOUS
     Route: 042
  2. UNSPECIFIED VITAMINS, MINERALS AND DIETARY SUPPLEMENTS [Concomitant]

REACTIONS (2)
  - DRUG ADMINISTRATION ERROR [None]
  - HAEMORRHAGE URINARY TRACT [None]
